FAERS Safety Report 8675827 (Version 3)
Quarter: 2012Q4

REPORT INFORMATION
  Report Type: 
  Country: US (occurrence: US)
  Receive Date: 20120720
  Receipt Date: 20121217
  Transmission Date: 20130627
  Serious: Yes (Other)
  Sender: FDA-Public Use
  Company Number: US-TEVA-348223USA

PATIENT
  Age: 62 None
  Sex: Female
  Weight: 81.72 kg

DRUGS (1)
  1. COPAXONE [Suspect]
     Indication: MULTIPLE SCLEROSIS
     Dosage: 20 Milligram Daily;
     Route: 058

REACTIONS (10)
  - Drug withdrawal syndrome [Not Recovered/Not Resolved]
  - Kidney fibrosis [Not Recovered/Not Resolved]
  - Anxiety [Not Recovered/Not Resolved]
  - Muscle spasms [Unknown]
  - Oedema peripheral [Unknown]
  - Localised infection [Unknown]
  - Oedema peripheral [Recovering/Resolving]
  - Gait disturbance [Unknown]
  - Feeling hot [Unknown]
  - Skin lesion [Recovering/Resolving]
